FAERS Safety Report 13192446 (Version 1)
Quarter: 2017Q1

REPORT INFORMATION
  Report Type: Report from Study
  Country: FR (occurrence: FR)
  Receive Date: 20170207
  Receipt Date: 20170207
  Transmission Date: 20170428
  Serious: Yes (Death, Hospitalization, Other)
  Sender: FDA-Public Use
  Company Number: FR-TOLMAR, INC.-2017FR000998

PATIENT
  Age: 63 Year
  Sex: Male
  Weight: 81 kg

DRUGS (4)
  1. ELIGARD [Suspect]
     Active Substance: LEUPROLIDE ACETATE
     Dosage: 45 MG, UNK
     Route: 058
     Dates: start: 20140102
  2. ELIGARD [Suspect]
     Active Substance: LEUPROLIDE ACETATE
     Indication: PROSTATE CANCER
     Dosage: 45 MG, UNK
     Route: 058
     Dates: start: 20130108
  3. ELIGARD [Suspect]
     Active Substance: LEUPROLIDE ACETATE
     Dosage: 45 MG, UNK
     Route: 058
     Dates: start: 20130708
  4. ELIGARD [Suspect]
     Active Substance: LEUPROLIDE ACETATE
     Dosage: 45 MG, UNK
     Route: 058
     Dates: start: 20140702

REACTIONS (5)
  - Neuroendocrine carcinoma metastatic [Unknown]
  - Diabetes mellitus [Unknown]
  - Rectal cancer [Fatal]
  - Device related infection [Unknown]
  - Seizure [Unknown]

NARRATIVE: CASE EVENT DATE: 20140909
